FAERS Safety Report 16737286 (Version 1)
Quarter: 2019Q3

REPORT INFORMATION
  Report Type: Spontaneous
  Country: GB (occurrence: GB)
  Receive Date: 20190823
  Receipt Date: 20190823
  Transmission Date: 20191005
  Serious: Yes (Other)
  Sender: FDA-Public Use
  Company Number: PHHY2019GB194074

PATIENT
  Age: 27 Year
  Sex: Female
  Weight: 82.55 kg

DRUGS (4)
  1. NAPROXEN. [Concomitant]
     Active Substance: NAPROXEN
     Indication: PRODUCT USED FOR UNKNOWN INDICATION
     Dosage: UNK
     Route: 065
  2. OMEPRAZOLE. [Concomitant]
     Active Substance: OMEPRAZOLE
     Indication: PRODUCT USED FOR UNKNOWN INDICATION
     Dosage: UNK
     Route: 065
  3. LYRICA [Interacting]
     Active Substance: PREGABALIN
     Indication: SCIATICA
     Dosage: 150 MG, UNK
     Route: 048
     Dates: start: 20190718, end: 20190724
  4. COCODAMOL [Suspect]
     Active Substance: ACETAMINOPHEN\CODEINE PHOSPHATE
     Indication: PRODUCT USED FOR UNKNOWN INDICATION
     Dosage: UNK (30/500)
     Route: 065

REACTIONS (5)
  - Diarrhoea [Recovered/Resolved]
  - Somnolence [Recovered/Resolved]
  - Disorientation [Recovered/Resolved]
  - Drug interaction [Unknown]
  - Euphoric mood [Recovered/Resolved]

NARRATIVE: CASE EVENT DATE: 20190720
